FAERS Safety Report 9528907 (Version 1)
Quarter: 2013Q2

REPORT INFORMATION
  Report Type: Spontaneous
  Country: US (occurrence: None)
  Receive Date: 20130401
  Receipt Date: 20130401
  Transmission Date: 20140414
  Serious: No
  Sender: FDA-Public Use
  Company Number: PHEH2012US024024

PATIENT
  Age: 74 Year
  Sex: Female

DRUGS (2)
  1. EXELON (RIVASTIGMINE) [Suspect]
     Route: 062
  2. ARICEPT (DONEPEZIL HYDROCHLORIDE) [Concomitant]

REACTIONS (1)
  - Dyspnoea [None]
